FAERS Safety Report 23180529 (Version 2)
Quarter: 2023Q4

REPORT INFORMATION
  Report Type: Spontaneous
  Country: JP (occurrence: JP)
  Receive Date: 20231114
  Receipt Date: 20231225
  Transmission Date: 20240110
  Serious: Yes (Hospitalization, Other)
  Sender: FDA-Public Use
  Company Number: JP-CHUGAI-2023039688

PATIENT
  Sex: Female

DRUGS (3)
  1. ACTEMRA [Suspect]
     Active Substance: TOCILIZUMAB
     Indication: Rheumatoid arthritis
     Dosage: UNK
     Route: 065
  2. IGURATIMOD [Suspect]
     Active Substance: IGURATIMOD
     Indication: Rheumatoid arthritis
     Dosage: UNK
     Route: 065
  3. METHOTREXATE [Suspect]
     Active Substance: METHOTREXATE
     Indication: Rheumatoid arthritis
     Dosage: UNK
     Route: 065

REACTIONS (9)
  - Non-Hodgkin^s lymphoma [Recovering/Resolving]
  - Acute kidney injury [Recovering/Resolving]
  - Schizophrenia [Unknown]
  - Cystitis [Unknown]
  - General symptom [Unknown]
  - Blood uric acid increased [Unknown]
  - Blood pressure increased [Unknown]
  - Stomatitis [Unknown]
  - Alopecia [Unknown]
